FAERS Safety Report 7709423-6 (Version None)
Quarter: 2011Q3

REPORT INFORMATION
  Report Type: 
  Country: None (occurrence: None)
  Receive Date: 20110825
  Receipt Date: 20110706
  Transmission Date: 20111222
  Serious: Yes (Hospitalization)
  Sender: FDA-Public Use
  Company Number: PL-UCBSA-016338

PATIENT
  Sex: Female
  Weight: 72 kg

DRUGS (6)
  1. CERTOLIZUMAB PEGOL [Suspect]
     Route: 058
     Dates: start: 20100729
  2. PREDNISONE [Concomitant]
     Indication: RHEUMATOID ARTHRITIS
     Route: 048
     Dates: start: 20080620
  3. METHOTREXATE [Concomitant]
     Indication: RHEUMATOID ARTHRITIS
     Route: 048
     Dates: start: 20080620
  4. CERTOLIZUMAB PEGOL [Suspect]
     Indication: RHEUMATOID ARTHRITIS
     Dosage: STUDY: CDP870-050.
     Route: 058
     Dates: start: 20060120, end: 20060705
  5. CERTOLIZUMAB PEGOL [Suspect]
     Route: 058
     Dates: start: 20080101, end: 20100715
  6. CERTOLIZUMAB PEGOL [Suspect]
     Route: 058
     Dates: start: 20060706, end: 20080101

REACTIONS (1)
  - ABSCESS LIMB [None]
